FAERS Safety Report 9738746 (Version 1)
Quarter: 2013Q4

REPORT INFORMATION
  Report Type: Report from Study
  Country: JP (occurrence: JP)
  Receive Date: 20131209
  Receipt Date: 20131209
  Transmission Date: 20140711
  Serious: Yes (Other)
  Sender: FDA-Public Use
  Company Number: JP-AMGEN-JPNCT2013086103

PATIENT
  Age: 74 Year
  Sex: Female
  Weight: 62 kg

DRUGS (26)
  1. DARBEPOETIN ALFA [Suspect]
     Indication: NEPHROGENIC ANAEMIA
     Dosage: 180 MUG, QD
     Route: 058
     Dates: start: 20111011
  2. ITOROL [Concomitant]
     Dosage: UNK
     Route: 048
  3. ADALAT-CR [Concomitant]
     Dosage: UNK
     Route: 048
  4. MICARDIS [Concomitant]
     Indication: DIABETIC NEPHROPATHY
     Dosage: UNK
     Route: 048
  5. MAINTATE [Concomitant]
     Dosage: UNK
     Route: 048
  6. FLUITRAN [Concomitant]
     Indication: DIABETIC NEPHROPATHY
     Dosage: UNK
     Route: 048
  7. PLAVIX [Concomitant]
     Dosage: UNK
     Route: 048
  8. PARIET [Concomitant]
     Dosage: UNK
     Route: 048
  9. FUROSEMIDE [Concomitant]
     Indication: DIABETIC NEPHROPATHY
     Dosage: UNK
     Route: 048
  10. BAYASPIRIN [Concomitant]
     Dosage: UNK
     Route: 048
  11. NIKORANMART [Concomitant]
     Dosage: UNK
     Route: 048
  12. LIPITOR [Concomitant]
     Dosage: UNK
     Route: 048
  13. NOVOLIN 50R [Concomitant]
     Dosage: UNK
     Route: 065
  14. URINORM [Concomitant]
     Indication: DIABETIC NEPHROPATHY
     Dosage: UNK
     Route: 048
  15. JUSO [Concomitant]
     Indication: DIABETIC NEPHROPATHY
     Dosage: UNK
     Route: 048
  16. FEBURIC [Concomitant]
     Indication: DIABETIC NEPHROPATHY
     Dosage: UNK
     Route: 048
  17. HUMALOG MIX [Concomitant]
     Dosage: UNK
     Route: 065
  18. TRAZENTA [Concomitant]
     Dosage: UNK
     Route: 048
  19. D-ALFA [Concomitant]
     Indication: DIABETIC NEPHROPATHY
     Dosage: UNK
     Route: 048
  20. SOLDEM 1 [Concomitant]
     Dosage: UNK
     Route: 065
  21. HANP [Concomitant]
     Dosage: UNK
     Route: 065
  22. GLUCOSE [Concomitant]
     Dosage: UNK
     Route: 065
  23. HEPARIN SODIUM [Concomitant]
     Dosage: UNK
     Route: 065
  24. ISOTONIC SODIUM CHLORIDE SOLUTION [Concomitant]
     Dosage: UNK
     Route: 065
  25. OMEPRAZOLE [Concomitant]
     Dosage: UNK
     Route: 065
  26. HUMULIN R [Concomitant]
     Dosage: UNK
     Route: 065

REACTIONS (4)
  - Cardiac failure [Recovering/Resolving]
  - Cataract [Recovering/Resolving]
  - Hypokalaemia [Recovering/Resolving]
  - Blood calcium decreased [Not Recovered/Not Resolved]
